FAERS Safety Report 5176362-7 (Version None)
Quarter: 2006Q4

REPORT INFORMATION
  Report Type: 
  Country: None (occurrence: None)
  Receive Date: 20061215
  Receipt Date: 20061016
  Transmission Date: 20070319
  Serious: Yes (Hospitalization)
  Sender: FDA-Public Use
  Company Number: GR-NOVOPROD-257859

PATIENT
  Age: 55 Year
  Sex: Male

DRUGS (3)
  1. NOVOLOG MIX 70/30 [Suspect]
     Indication: INSULIN-REQUIRING TYPE II DIABETES MELLITUS
     Dates: start: 20001107, end: 20061016
  2. RENITEC                            /00574901/ [Concomitant]
     Indication: HYPERTENSION
  3. ISOPHANE INSULIN [Concomitant]
     Indication: INSULIN-REQUIRING TYPE II DIABETES MELLITUS
     Dates: start: 20061016

REACTIONS (5)
  - DRUG LEVEL INCREASED [None]
  - HYPERTENSION [None]
  - INJECTION SITE SWELLING [None]
  - LUNG NEOPLASM MALIGNANT [None]
  - RASH [None]
